FAERS Safety Report 12960214 (Version 2)
Quarter: 2016Q4

REPORT INFORMATION
  Report Type: Spontaneous
  Country: TR (occurrence: TR)
  Receive Date: 20161121
  Receipt Date: 20161219
  Transmission Date: 20170207
  Serious: Yes (Hospitalization)
  Sender: FDA-Public Use
  Company Number: TR-APOTEX-2016AP014686

PATIENT
  Age: 52 Year
  Sex: Female

DRUGS (5)
  1. VITAMIN D3 [Concomitant]
     Active Substance: CHOLECALCIFEROL
     Indication: POLYARTHRITIS
     Route: 065
  2. ALENDRONATE 70 [Suspect]
     Active Substance: ALENDRONATE SODIUM
     Dosage: UNK
     Route: 048
  3. ALENDRONATE 70 [Suspect]
     Active Substance: ALENDRONATE SODIUM
     Indication: OSTEOPOROSIS POSTMENOPAUSAL
     Dosage: 70 MG/WEEK
     Route: 048
  4. RISEDRONIC ACID [Suspect]
     Active Substance: RISEDRONIC ACID
     Indication: OSTEOPOROSIS POSTMENOPAUSAL
     Dosage: 34 MG, Q.WK.
     Route: 048
  5. CALCIUM [Concomitant]
     Active Substance: CALCIUM
     Indication: POLYARTHRITIS
     Route: 048

REACTIONS (1)
  - Polyarthritis [Recovered/Resolved]
